FAERS Safety Report 20461230 (Version 1)
Quarter: 2022Q1

REPORT INFORMATION
  Report Type: Spontaneous
  Country: US (occurrence: None)
  Receive Date: 20220210
  Receipt Date: 20220210
  Transmission Date: 20220423
  Serious: Yes (Other)
  Sender: FDA-Public Use
  Company Number: None

PATIENT
  Age: 47 Year
  Weight: 101.25 kg

DRUGS (20)
  1. NOVOLOG [Suspect]
     Active Substance: INSULIN ASPART
     Indication: Type 3 diabetes mellitus
     Dosage: OTHER QUANTITY : 1 UNIT/ML;?FREQUENCY : AS NEEDED;?
     Route: 058
     Dates: start: 20211201, end: 20220209
  2. PHENTERMINE [Concomitant]
     Active Substance: PHENTERMINE
  3. OMEPRAZOLE [Concomitant]
     Active Substance: OMEPRAZOLE
  4. SPIRONOLACTONE [Concomitant]
     Active Substance: SPIRONOLACTONE
  5. FUROSEMIDE [Concomitant]
     Active Substance: FUROSEMIDE
  6. CEPHALEXEN [Concomitant]
  7. ESCITALOPRAM [Concomitant]
     Active Substance: ESCITALOPRAM OXALATE
  8. BUSPIRONE [Concomitant]
     Active Substance: BUSPIRONE HYDROCHLORIDE
  9. CLOPIDOGREL [Concomitant]
     Active Substance: CLOPIDOGREL BISULFATE
  10. APIXABAN [Concomitant]
     Active Substance: APIXABAN
  11. PREGABALIN [Concomitant]
     Active Substance: PREGABALIN
  12. VITAMIN D2 [Concomitant]
     Active Substance: ERGOCALCIFEROL
  13. CREON [Concomitant]
     Active Substance: PANCRELIPASE AMYLASE\PANCRELIPASE LIPASE\PANCRELIPASE PROTEASE
  14. ACETAMINOPHEN\OXYCODONE HYDROCHLORIDE [Concomitant]
     Active Substance: ACETAMINOPHEN\OXYCODONE HYDROCHLORIDE
  15. LORAZEPAM [Concomitant]
     Active Substance: LORAZEPAM
  16. TANDEM T:SLIM INSULIN PUMP [Concomitant]
  17. DEXCOM G6 GLUCOSE MONITOR [Concomitant]
  18. LILETTA [Concomitant]
     Active Substance: LEVONORGESTREL
  19. MELATONIN [Concomitant]
     Active Substance: MELATONIN
  20. VITAMIN D3 [Concomitant]
     Active Substance: CHOLECALCIFEROL

REACTIONS (3)
  - Product quality issue [None]
  - Diabetes mellitus inadequate control [None]
  - Drug ineffective [None]

NARRATIVE: CASE EVENT DATE: 20220209
